FAERS Safety Report 5700721-4 (Version None)
Quarter: 2008Q2

REPORT INFORMATION
  Report Type: 
  Country: None (occurrence: None)
  Receive Date: 20080410
  Receipt Date: 20080123
  Transmission Date: 20081010
  Serious: No
  Sender: FDA-Public Use
  Company Number: A0704927A

PATIENT
  Sex: Female

DRUGS (2)
  1. TYKERB [Suspect]
  2. XELODA [Concomitant]

REACTIONS (1)
  - NASOPHARYNGITIS [None]
